FAERS Safety Report 5616296-4 (Version None)
Quarter: 2008Q1

REPORT INFORMATION
  Report Type: 
  Country: None (occurrence: None)
  Receive Date: 20080204
  Receipt Date: 20080122
  Transmission Date: 20080703
  Serious: Yes (Hospitalization, Other)
  Sender: FDA-Public Use
  Company Number: CERZ-1000024

PATIENT
  Age: 54 Year
  Sex: Male
  Weight: 84 kg

DRUGS (2)
  1. CEREZYME [Suspect]
     Indication: GAUCHER'S DISEASE
     Dosage: 60U/KG, Q2W, INTRAVENOUS
     Route: 042
     Dates: start: 19970408
  2. GABAPENTIN [Concomitant]

REACTIONS (1)
  - ANEURYSMAL BONE CYST [None]
